FAERS Safety Report 25223989 (Version 1)
Quarter: 2025Q2

REPORT INFORMATION
  Report Type: Spontaneous
  Country: US (occurrence: US)
  Receive Date: 20250422
  Receipt Date: 20250422
  Transmission Date: 20250717
  Serious: No
  Sender: SANDOZ
  Company Number: US-002147023-NVSC2025US065010

PATIENT
  Sex: Male

DRUGS (3)
  1. AMLODIPINE [Suspect]
     Active Substance: AMLODIPINE BESYLATE
     Indication: Secondary hypertension
     Route: 048
  2. BUDESONIDE [Suspect]
     Active Substance: BUDESONIDE
     Indication: Product used for unknown indication
     Route: 048
  3. IPTACOPAN [Suspect]
     Active Substance: IPTACOPAN
     Indication: IgA nephropathy
     Dosage: 200 MG, QD (HARD-GELATIN CAPSULE)
     Route: 048

REACTIONS (5)
  - Exercise tolerance decreased [Unknown]
  - Oedema peripheral [Not Recovered/Not Resolved]
  - Productive cough [Unknown]
  - Dysphonia [Unknown]
  - Palpitations [Not Recovered/Not Resolved]
